FAERS Safety Report 7357610-1 (Version None)
Quarter: 2011Q1

REPORT INFORMATION
  Report Type: 
  Country: None (occurrence: None)
  Receive Date: 20110317
  Receipt Date: 20110314
  Transmission Date: 20110831
  Serious: Yes (Other)
  Sender: FDA-Public Use
  Company Number: US-BRISTOL-MYERS SQUIBB COMPANY-15605587

PATIENT
  Age: 80 Year
  Sex: Female
  Weight: 70 kg

DRUGS (8)
  1. HYZAAR [Concomitant]
     Dosage: HYZAAR GENERIC
  2. GLUCOPHAGE [Suspect]
     Indication: TYPE 2 DIABETES MELLITUS
     Dates: start: 20000701
  3. TIMOLOL [Concomitant]
     Indication: GLAUCOMA
     Dosage: TIMOLOL EYE DROPS
  4. METFORMIN HCL [Suspect]
     Dosage: TEVAA 1000MG BID ON 09MAR2011,THERAPY WITH GEN METFORMIN FOR 1 MONTH IN 2000 AND 3 WEEKS AUG2009
  5. METOPROLOL [Concomitant]
  6. AMLODIPINE BESYLATE [Concomitant]
  7. GLIMEPIRIDE [Concomitant]
     Dosage: 1 DF = 2MG-HALF TABLET
  8. SIMVASTATIN [Concomitant]

REACTIONS (3)
  - DIARRHOEA [None]
  - NAUSEA [None]
  - SURGERY [None]
